FAERS Safety Report 6932206-1 (Version None)
Quarter: 2010Q3

REPORT INFORMATION
  Report Type: 
  Country: None (occurrence: None)
  Receive Date: 20100819
  Receipt Date: 20100809
  Transmission Date: 20110219
  Serious: Yes (Other)
  Sender: FDA-Public Use
  Company Number: GB-ROCHE-659903

PATIENT
  Sex: Male
  Weight: 97 kg

DRUGS (3)
  1. TAMIFLU [Suspect]
     Route: 048
     Dates: start: 20090728
  2. SILDENAFIL CITRATE [Concomitant]
     Indication: ERECTILE DYSFUNCTION
     Route: 048
     Dates: start: 20041116
  3. LISINOPRIL [Concomitant]
     Indication: HYPERTENSION
     Route: 048
     Dates: start: 20070706, end: 20070801

REACTIONS (6)
  - DEMYELINATION [None]
  - MENTAL DISORDER [None]
  - PARAESTHESIA [None]
  - TINNITUS [None]
  - VERTIGO [None]
  - VIRAL LABYRINTHITIS [None]
